FAERS Safety Report 13564929 (Version 8)
Quarter: 2017Q3

REPORT INFORMATION
  Report Type: Spontaneous
  Country: KR (occurrence: KR)
  Receive Date: 20170519
  Receipt Date: 20170905
  Transmission Date: 20171127
  Serious: Yes (Hospitalization, Other)
  Sender: FDA-Public Use
  Company Number: KR-009507513-1705KOR008562

PATIENT
  Age: 61 Year
  Sex: Male
  Weight: 62.3 kg

DRUGS (58)
  1. EMEND (FOSAPREPITANT DIMEGLUMINE) [Suspect]
     Active Substance: FOSAPREPITANT DIMEGLUMINE
     Dosage: 150 MG, ONCE
     Route: 042
     Dates: start: 20161101, end: 20161101
  2. CISPLAN [Concomitant]
     Active Substance: CISPLATIN
     Dosage: 80 MG, ONCE, CYCLE 1. STRENGTH: 50MG/100ML
     Route: 042
     Dates: start: 20170308, end: 20170308
  3. KYTRIL [Concomitant]
     Active Substance: GRANISETRON HYDROCHLORIDE
     Dosage: 3 MG, ONCE
     Route: 042
     Dates: start: 20161011, end: 20161018
  4. SYNATURA [Concomitant]
     Indication: CHRONIC OBSTRUCTIVE PULMONARY DISEASE
     Dosage: 1 PK, BID
     Route: 048
     Dates: start: 201609, end: 20170411
  5. MACPERAN [Concomitant]
     Active Substance: METOCLOPRAMIDE HYDROCHLORIDE
     Indication: NAUSEA
     Dosage: 10 MG, QD
     Route: 042
     Dates: start: 201609, end: 20170323
  6. MACPERAN [Concomitant]
     Active Substance: METOCLOPRAMIDE HYDROCHLORIDE
     Dosage: 1 DF, TID
     Route: 048
     Dates: start: 20170330, end: 20170425
  7. EMEND (FOSAPREPITANT DIMEGLUMINE) [Suspect]
     Active Substance: FOSAPREPITANT DIMEGLUMINE
     Dosage: 150 MG, ONCE
     Route: 042
     Dates: start: 20170308, end: 20170308
  8. GEMCITABINE [Concomitant]
     Active Substance: GEMCITABINE\GEMCITABINE HYDROCHLORIDE
     Indication: SQUAMOUS CELL CARCINOMA OF LUNG
     Dosage: 1500MG, BID, CYCLE 5
     Route: 042
     Dates: start: 20161101, end: 20161101
  9. GEMCITABINE [Concomitant]
     Active Substance: GEMCITABINE\GEMCITABINE HYDROCHLORIDE
     Dosage: 1500MG, BID, CYCLE 6
     Route: 042
     Dates: start: 20161129, end: 20161129
  10. GEMCITABINE [Concomitant]
     Active Substance: GEMCITABINE\GEMCITABINE HYDROCHLORIDE
     Dosage: 1500 MG, QD, CYCLE 6
     Route: 042
     Dates: start: 20161130, end: 20161205
  11. DEXAMETHASONE. [Concomitant]
     Active Substance: DEXAMETHASONE
     Dosage: 12 MG, ONCE. STRENGTH: 5MG/ML
     Route: 042
     Dates: start: 20161129, end: 20161129
  12. DEXAMETHASONE. [Concomitant]
     Active Substance: DEXAMETHASONE
     Dosage: 10 MG, ONCE. STRENGTH: 5MG/ML
     Route: 042
     Dates: start: 20170308, end: 20170308
  13. DECOIN [Concomitant]
     Indication: CHRONIC OBSTRUCTIVE PULMONARY DISEASE
     Dosage: 1 DF, BID
     Route: 048
     Dates: start: 201609
  14. QUETIAPINE FUMARATE. [Concomitant]
     Active Substance: QUETIAPINE FUMARATE
     Indication: PROPHYLAXIS
     Dosage: 25 MG (1 TABLET), QD
     Route: 048
     Dates: start: 20161101, end: 20170427
  15. SOLONDO [Concomitant]
     Active Substance: PREDNISOLONE
     Indication: PROPHYLAXIS OF NAUSEA AND VOMITING
     Dosage: 7.5 MG, BID
     Route: 048
     Dates: start: 20161018, end: 20161023
  16. EMEND (FOSAPREPITANT DIMEGLUMINE) [Suspect]
     Active Substance: FOSAPREPITANT DIMEGLUMINE
     Dosage: 150 MG, ONCE
     Route: 042
     Dates: start: 20161129, end: 20161129
  17. EMEND (FOSAPREPITANT DIMEGLUMINE) [Suspect]
     Active Substance: FOSAPREPITANT DIMEGLUMINE
     Dosage: 150 MG, ONCE
     Route: 042
     Dates: start: 20170419, end: 20170419
  18. GEMCITABINE [Concomitant]
     Active Substance: GEMCITABINE\GEMCITABINE HYDROCHLORIDE
     Dosage: 1500 MG, BID, CYCLE 4
     Route: 042
     Dates: start: 20161011, end: 20161018
  19. CISPLAN [Concomitant]
     Active Substance: CISPLATIN
     Indication: SQUAMOUS CELL CARCINOMA OF LUNG
     Dosage: 65 MG, ONCE, CYCLE 5. STRENGTH: 50MG/100ML
     Route: 042
     Dates: start: 20161101, end: 20161101
  20. DEXAMETHASONE. [Concomitant]
     Active Substance: DEXAMETHASONE
     Indication: PREMEDICATION
     Dosage: 12 MG, ONCE. STRENGTH: 5MG/ML
     Route: 042
     Dates: start: 20161101, end: 20161101
  21. DEXAMETHASONE. [Concomitant]
     Active Substance: DEXAMETHASONE
     Dosage: 10 MG, ONCE. STRENGTH: 5MG/ML
     Route: 042
     Dates: start: 20161018, end: 20161018
  22. KYTRIL [Concomitant]
     Active Substance: GRANISETRON HYDROCHLORIDE
     Indication: PREMEDICATION
     Dosage: 3 MG, ONCE
     Route: 042
     Dates: start: 20161101, end: 20161101
  23. KYTRIL [Concomitant]
     Active Substance: GRANISETRON HYDROCHLORIDE
     Dosage: 3 MG, BID
     Route: 042
     Dates: start: 20161206, end: 20161206
  24. KYTRIL [Concomitant]
     Active Substance: GRANISETRON HYDROCHLORIDE
     Dosage: 3 MG, ONCE
     Route: 042
     Dates: start: 20170308, end: 20170308
  25. LACTULOSE. [Concomitant]
     Active Substance: LACTULOSE
     Indication: CONSTIPATION PROPHYLAXIS
     Dosage: 1 DF, TID
     Route: 048
     Dates: start: 20170316, end: 20170417
  26. GEMCITABINE [Concomitant]
     Active Substance: GEMCITABINE\GEMCITABINE HYDROCHLORIDE
     Dosage: 1500 MG, BID, CYCLE 5
     Route: 042
     Dates: start: 20161115, end: 20161115
  27. CISPLAN [Concomitant]
     Active Substance: CISPLATIN
     Dosage: 65 MG, ONCE, CYCLE 6. STRENGTH: 50MG/100ML
     Route: 042
     Dates: start: 20161129, end: 20161129
  28. CISPLAN [Concomitant]
     Active Substance: CISPLATIN
     Dosage: 65 MG, ONCE, CYCLE 4. STRENGTH: 50MG/100ML
     Route: 042
     Dates: start: 20161011, end: 20161011
  29. DEXAMETHASONE. [Concomitant]
     Active Substance: DEXAMETHASONE
     Dosage: 10 MG, ONCE. STRENGTH: 5MG/ML
     Route: 042
     Dates: start: 20170329, end: 20170329
  30. DEXAMETHASONE. [Concomitant]
     Active Substance: DEXAMETHASONE
     Dosage: 10 MG, ONCE. STRENGTH: 5MG/ML
     Route: 042
     Dates: start: 20170419, end: 20170419
  31. KYTRIL [Concomitant]
     Active Substance: GRANISETRON HYDROCHLORIDE
     Dosage: 3 MG, BID
     Route: 042
     Dates: start: 20161129, end: 20161129
  32. PRADAXA [Concomitant]
     Active Substance: DABIGATRAN ETEXILATE MESYLATE
     Indication: PULMONARY EMBOLISM
     Dosage: 1 DF, BID
     Route: 048
     Dates: start: 201609, end: 20161107
  33. SOLONDO [Concomitant]
     Active Substance: PREDNISOLONE
     Dosage: 7.5 MG, BID
     Route: 048
     Dates: start: 20161206, end: 20161211
  34. DEXAMETHASONE. [Concomitant]
     Active Substance: DEXAMETHASONE
     Dosage: 10 MG, ONCE. STRENGTH: 5MG/ML
     Route: 042
     Dates: start: 20161206, end: 20161206
  35. KYTRIL [Concomitant]
     Active Substance: GRANISETRON HYDROCHLORIDE
     Dosage: 3 MG, ONCE
     Route: 042
     Dates: start: 20170329, end: 20170329
  36. DOCETAXEL. [Concomitant]
     Active Substance: DOCETAXEL
     Dosage: 90 MG, ONCE, CYCLE 1
     Route: 042
     Dates: start: 20170308, end: 20170308
  37. EMEND (FOSAPREPITANT DIMEGLUMINE) [Suspect]
     Active Substance: FOSAPREPITANT DIMEGLUMINE
     Dosage: 150 MG, ONCE
     Route: 042
     Dates: start: 20170329, end: 20170329
  38. GEMCITABINE [Concomitant]
     Active Substance: GEMCITABINE\GEMCITABINE HYDROCHLORIDE
     Dosage: 1500 MG, BID, CYCLE 5
     Route: 042
     Dates: start: 20161101, end: 20161115
  39. GEMCITABINE [Concomitant]
     Active Substance: GEMCITABINE\GEMCITABINE HYDROCHLORIDE
     Dosage: 1500MG, BID, CYCLE 6
     Route: 042
     Dates: start: 20161129, end: 20161206
  40. DEXAMETHASONE. [Concomitant]
     Active Substance: DEXAMETHASONE
     Dosage: 8 MG, BID
     Route: 048
     Dates: start: 20170307, end: 20170311
  41. DEXAMETHASONE. [Concomitant]
     Active Substance: DEXAMETHASONE
     Dosage: 8 MG, BID
     Route: 048
     Dates: start: 20170418, end: 20170422
  42. PRIMALAN [Concomitant]
     Active Substance: MEQUITAZINE
     Indication: PROPHYLAXIS
     Dosage: 0.5 DF, BID
     Route: 048
     Dates: start: 201609, end: 20170328
  43. GEMCITABINE [Concomitant]
     Active Substance: GEMCITABINE\GEMCITABINE HYDROCHLORIDE
     Dosage: 1500 MG, QD, CYCLE 5
     Route: 042
     Dates: start: 20161102, end: 20161114
  44. GEMCITABINE [Concomitant]
     Active Substance: GEMCITABINE\GEMCITABINE HYDROCHLORIDE
     Dosage: 1500 MG, BID, CYCLE 6
     Route: 042
     Dates: start: 20161206, end: 20161206
  45. DEXAMETHASONE. [Concomitant]
     Active Substance: DEXAMETHASONE
     Dosage: 10 MG, ONCE. STRENGTH: 5MG/ML
     Route: 042
     Dates: start: 20161011, end: 20161011
  46. DEXAMETHASONE. [Concomitant]
     Active Substance: DEXAMETHASONE
     Indication: PREMEDICATION
     Dosage: 4 MG, BID
     Route: 048
     Dates: start: 20161130, end: 20161202
  47. DEXAMETHASONE. [Concomitant]
     Active Substance: DEXAMETHASONE
     Dosage: 8 MG, BID
     Route: 048
     Dates: start: 20170328, end: 20170401
  48. DEXAMETHASONE. [Concomitant]
     Active Substance: DEXAMETHASONE
     Dosage: 4 MG, BID
     Route: 048
     Dates: start: 20161012, end: 20161014
  49. KYTRIL [Concomitant]
     Active Substance: GRANISETRON HYDROCHLORIDE
     Dosage: 3 MG, ONCE
     Route: 042
     Dates: start: 20170419, end: 20170419
  50. EMEND (FOSAPREPITANT DIMEGLUMINE) [Suspect]
     Active Substance: FOSAPREPITANT DIMEGLUMINE
     Indication: PROPHYLAXIS OF NAUSEA AND VOMITING
     Dosage: 150 MG, ONCE
     Route: 042
     Dates: start: 20161011, end: 20161011
  51. CISPLAN [Concomitant]
     Active Substance: CISPLATIN
     Dosage: 65 MG, ONCE, CYCLE 2. STRENGTH: 50MG/100ML
     Route: 042
     Dates: start: 20170329, end: 20170329
  52. CISPLAN [Concomitant]
     Active Substance: CISPLATIN
     Dosage: 65 MG, ONCE, CYCLE 3. STRENGTH: 50MG/100ML
     Route: 042
     Dates: start: 20170419, end: 20170419
  53. DEXAMETHASONE. [Concomitant]
     Active Substance: DEXAMETHASONE
     Indication: PROPHYLAXIS
     Dosage: 4 MG, BID
     Route: 048
     Dates: start: 20161102, end: 20161104
  54. KYTRIL [Concomitant]
     Active Substance: GRANISETRON HYDROCHLORIDE
     Dosage: 3 MG, QD
     Route: 042
     Dates: start: 20161130, end: 20161205
  55. MAGO [Concomitant]
     Indication: CONSTIPATION PROPHYLAXIS
     Dosage: 1 DF, BID
     Route: 048
     Dates: start: 201609
  56. PANTOLOC [Concomitant]
     Active Substance: PANTOPRAZOLE SODIUM
     Indication: PROPHYLAXIS
     Dosage: 1 DF, QD
     Route: 048
     Dates: start: 20161018, end: 20161211
  57. DOCETAXEL. [Concomitant]
     Active Substance: DOCETAXEL
     Dosage: 90 MG, ONCE, CYCLE 2
     Route: 042
     Dates: start: 20170329, end: 20170329
  58. DOCETAXEL. [Concomitant]
     Active Substance: DOCETAXEL
     Dosage: 90 MG, ONCE, CYCLE 3
     Route: 042
     Dates: start: 20170419, end: 20170419

REACTIONS (5)
  - Pulmonary embolism [Recovered/Resolved]
  - Oropharyngeal pain [Recovered/Resolved]
  - Dyspnoea [Recovered/Resolved]
  - Febrile neutropenia [Recovered/Resolved]
  - Hypotension [Recovered/Resolved]

NARRATIVE: CASE EVENT DATE: 20161108
